FAERS Safety Report 6165270-0 (Version None)
Quarter: 2009Q2

REPORT INFORMATION
  Report Type: 
  Country: None (occurrence: None)
  Receive Date: 20090423
  Receipt Date: 20090417
  Transmission Date: 20091009
  Serious: Yes (Hospitalization)
  Sender: FDA-Public Use
  Company Number: A0779970A

PATIENT
  Age: 60 Year
  Sex: Female
  Weight: 63.6 kg

DRUGS (18)
  1. AVANDIA [Suspect]
     Dosage: 4MG TWICE PER DAY
     Route: 065
     Dates: start: 20010411, end: 20050901
  2. LOPRESSOR [Concomitant]
     Dates: start: 20000101
  3. FUROSEMIDE [Concomitant]
     Dates: start: 20030101
  4. DIOVAN HCT [Concomitant]
     Dates: start: 20030101
  5. ZOCOR [Concomitant]
     Dates: start: 20030101, end: 20040101
  6. LIPITOR [Concomitant]
     Dates: start: 20030101
  7. ASPIRIN [Concomitant]
  8. ZYMAR [Concomitant]
  9. HYZAAR [Concomitant]
     Indication: HYPERTENSION
  10. LISINOPRIL [Concomitant]
     Indication: HYPERTENSION
  11. METOCLOPRAMIDE [Concomitant]
  12. COSOPT [Concomitant]
  13. ALPHAGAN [Concomitant]
     Indication: GLAUCOMA
  14. PREVACID [Concomitant]
  15. CIPROFLOXACIN HCL [Concomitant]
  16. DIFLUCAN [Concomitant]
  17. GLUCOTROL [Concomitant]
     Dates: start: 20040501
  18. GLUCOVANCE [Concomitant]
     Dates: start: 20030101

REACTIONS (6)
  - CARDIAC FAILURE CONGESTIVE [None]
  - CEREBROVASCULAR ACCIDENT [None]
  - CORONARY ARTERY DISEASE [None]
  - HEMIPLEGIA [None]
  - MYOCARDIAL INFARCTION [None]
  - SPEECH DISORDER [None]
